FAERS Safety Report 16376690 (Version 2)
Quarter: 2019Q2

REPORT INFORMATION
  Report Type: Report from Study
  Country: DE (occurrence: DE)
  Receive Date: 20190531
  Receipt Date: 20190607
  Transmission Date: 20190711
  Serious: Yes (Hospitalization, Other)
  Sender: FDA-Public Use
  Company Number: DE-MYLANLABS-2019M1049559

PATIENT
  Age: 43 Year
  Sex: Male
  Weight: 69 kg

DRUGS (12)
  1. TENOFOVIR [Suspect]
     Active Substance: TENOFOVIR
     Indication: HIV INFECTION
     Dosage: 245 MG, QD
     Route: 065
     Dates: start: 20180821
  2. TRAZODON HEXAL [Concomitant]
     Active Substance: TRAZODONE HYDROCHLORIDE
     Indication: PRODUCT USED FOR UNKNOWN INDICATION
     Dosage: 100 MILLIGRAM, QD
     Route: 065
     Dates: start: 20180918
  3. QUETIAPIN HEUMANN [Concomitant]
     Indication: PRODUCT USED FOR UNKNOWN INDICATION
     Dosage: 25 MG, QD
     Dates: start: 20180918
  4. PIBRENTASVIR [Concomitant]
     Active Substance: PIBRENTASVIR
     Indication: CHRONIC HEPATITIS C
     Dosage: 420 MILLIGRAM, QD
     Route: 048
     Dates: start: 20180821
  5. MOXIFLOXACIN. [Concomitant]
     Active Substance: MOXIFLOXACIN
     Indication: PRODUCT USED FOR UNKNOWN INDICATION
     Dosage: 400 MILLIGRAM, QD
     Route: 065
     Dates: start: 20180815, end: 20180821
  6. MAVIRET [Concomitant]
     Active Substance: GLECAPREVIR\PIBRENTASVIR
     Indication: CHRONIC HEPATITIS C
     Dosage: 420 MILLIGRAM, QD
     Route: 048
     Dates: start: 20180821, end: 20181015
  7. GLECAPREVIR [Concomitant]
     Active Substance: GLECAPREVIR
     Indication: CHRONIC HEPATITIS C
     Dosage: 420 MG, QD
     Route: 048
     Dates: start: 20180821
  8. TURIXIN [Concomitant]
     Active Substance: MUPIROCIN CALCIUM
     Indication: PRODUCT USED FOR UNKNOWN INDICATION
     Dosage: UNK
     Route: 065
     Dates: start: 20180918, end: 20180930
  9. FOSTER                             /00500401/ [Concomitant]
     Active Substance: PIROXICAM
     Indication: PRODUCT USED FOR UNKNOWN INDICATION
     Dosage: 1 DOSAGE FORM, QD (200/12 MCG, QD)
     Route: 065
     Dates: start: 20141118
  10. EMTRICITABINE [Suspect]
     Active Substance: EMTRICITABINE
     Indication: HIV INFECTION
     Dosage: 200 MILLIGRAM, QD
     Route: 065
     Dates: start: 20180821
  11. ETORICOXIB. [Concomitant]
     Active Substance: ETORICOXIB
     Indication: PRODUCT USED FOR UNKNOWN INDICATION
     Dosage: UNK
     Route: 065
     Dates: start: 20180918
  12. DOLUTEGRAVIR [Concomitant]
     Active Substance: DOLUTEGRAVIR
     Indication: HIV INFECTION
     Dosage: 50 MILLIGRAM, QD
     Route: 065

REACTIONS (2)
  - Staphylococcal infection [Recovering/Resolving]
  - Wound abscess [Recovering/Resolving]

NARRATIVE: CASE EVENT DATE: 20180907
